FAERS Safety Report 6370591-2 (Version None)
Quarter: 2009Q3

REPORT INFORMATION
  Report Type: 
  Country: None (occurrence: None)
  Receive Date: 20090923
  Receipt Date: 20090914
  Transmission Date: 20100115
  Serious: Yes (Hospitalization)
  Sender: FDA-Public Use
  Company Number: B0594484A

PATIENT
  Sex: Male

DRUGS (1)
  1. AVODART [Suspect]
     Indication: DRUG USE FOR UNKNOWN INDICATION
     Route: 065
     Dates: start: 20090512, end: 20090528

REACTIONS (7)
  - BRONCHOSPASM [None]
  - CHEST PAIN [None]
  - DYSPNOEA [None]
  - LIP SWELLING [None]
  - RASH [None]
  - SWOLLEN TONGUE [None]
  - URTICARIA [None]
